FAERS Safety Report 14193093 (Version 3)
Quarter: 2017Q4

REPORT INFORMATION
  Report Type: Report from Study
  Country: IT (occurrence: IT)
  Receive Date: 20171115
  Receipt Date: 20171218
  Transmission Date: 20180321
  Serious: Yes (Other)
  Sender: FDA-Public Use
  Company Number: IT-PFIZER INC-2017485839

PATIENT

DRUGS (2)
  1. GEMCITABINE HYDROCHLORIDE. [Suspect]
     Active Substance: GEMCITABINE HYDROCHLORIDE
     Indication: LYMPHOMA
     Dosage: 800 MG/M2, CYCLIC (ON DAY 1 AND 15, FOR 6 CYCLES, EVERY 28 DAYS)
     Route: 042
  2. ROMIDEPSIN. [Suspect]
     Active Substance: ROMIDEPSIN
     Indication: LYMPHOMA
     Dosage: 12 MG/M2, CYCLIC (ON DAYS 1,8,15)
     Route: 042

REACTIONS (1)
  - Cardiotoxicity [Unknown]
